FAERS Safety Report 8871900 (Version 3)
Quarter: 2012Q4

REPORT INFORMATION
  Report Type: 
  Country: US (occurrence: US)
  Receive Date: 20121023
  Receipt Date: 20121217
  Transmission Date: 20130627
  Serious: Yes (Hospitalization, Other)
  Sender: FDA-Public Use
  Company Number: US-ASTELLAS-2012US006084

PATIENT
  Age: 62 Year
  Sex: Male

DRUGS (6)
  1. PROGRAF [Suspect]
     Indication: HEART TRANSPLANT
     Dosage: 1 mg, bid
     Route: 048
     Dates: start: 20090624
  2. BACTRIM [Concomitant]
     Indication: ANTIBIOTIC THERAPY
     Dosage: 80/160 tabs 3 times a week
     Dates: start: 20090601
  3. RAPAMUNE [Concomitant]
     Indication: TRANSPLANT
     Dosage: 2 mg, UID/QD
     Route: 048
     Dates: start: 20101101
  4. LIPITOR [Concomitant]
     Indication: BLOOD CHOLESTEROL
     Dosage: 20 mg, UID/QD
     Route: 048
     Dates: start: 20071101
  5. DILANTIN                           /00017401/ [Concomitant]
     Indication: CONVULSION
     Dosage: 100 mg, tid
     Route: 048
     Dates: start: 201204
  6. DILANTIN                           /00017401/ [Concomitant]
     Dosage: 200 mg, bid
     Route: 048

REACTIONS (9)
  - Ocular icterus [Unknown]
  - Memory impairment [Unknown]
  - Confusional state [Recovering/Resolving]
  - Convulsion [Recovered/Resolved]
  - Convulsion [Recovered/Resolved]
  - Convulsion [Recovered/Resolved]
  - Migraine [Unknown]
  - Coordination abnormal [Recovering/Resolving]
  - Somnolence [Recovering/Resolving]
